FAERS Safety Report 14554072 (Version 7)
Quarter: 2019Q3

REPORT INFORMATION
  Report Type: Spontaneous
  Country: US (occurrence: US)
  Receive Date: 20180220
  Receipt Date: 20190801
  Transmission Date: 20191004
  Serious: Yes (Hospitalization)
  Sender: FDA-Public Use
  Company Number: US-VIFOR (INTERNATIONAL) INC.-VIT-2018-01479

PATIENT
  Age: 64 Year
  Sex: Male

DRUGS (18)
  1. PHOSPHA 250 NEUTRAL [Concomitant]
     Active Substance: POTASSIUM PHOSPHATE, MONOBASIC\SODIUM PHOSPHATE, DIBASIC, ANHYDROUS\SODIUM PHOSPHATE, MONOBASIC, MONOHYDRATE
  2. ZOFRAN [Concomitant]
     Active Substance: ONDANSETRON HYDROCHLORIDE
  3. TOLTERODINE TARTRATE. [Concomitant]
     Active Substance: TOLTERODINE TARTRATE
  4. EPOGEN [Concomitant]
     Active Substance: ERYTHROPOIETIN
  5. AMOXICILLIN. [Concomitant]
     Active Substance: AMOXICILLIN
  6. METHYLPREDNISOLONE. [Concomitant]
     Active Substance: METHYLPREDNISOLONE
  7. SPIRIVA [Concomitant]
     Active Substance: TIOTROPIUM BROMIDE MONOHYDRATE
  8. VITAMIN D2 [Concomitant]
     Active Substance: ERGOCALCIFEROL
  9. TACROLIMUS. [Concomitant]
     Active Substance: TACROLIMUS
  10. VELTASSA [Suspect]
     Active Substance: PATIROMER
     Indication: HYPERKALAEMIA
     Route: 048
     Dates: start: 20170613, end: 201904
  11. ASPIRIN. [Concomitant]
     Active Substance: ASPIRIN
  12. MYFORTIC [Concomitant]
     Active Substance: MYCOPHENOLATE SODIUM
  13. VELTASSA [Suspect]
     Active Substance: PATIROMER
     Route: 048
     Dates: start: 2019
  14. LOSARTAN POTASSIUM. [Concomitant]
     Active Substance: LOSARTAN POTASSIUM
  15. ALLOPURINOL. [Concomitant]
     Active Substance: ALLOPURINOL
  16. VENTOLIN HFA [Concomitant]
     Active Substance: ALBUTEROL SULFATE
  17. OMEPRAZOLE. [Concomitant]
     Active Substance: OMEPRAZOLE
  18. SODIUM POLYSTYRENE SULFONATE. [Concomitant]
     Active Substance: SODIUM POLYSTYRENE SULFONATE

REACTIONS (12)
  - Constipation [Unknown]
  - Abdominal pain [Unknown]
  - Colon cancer metastatic [Unknown]
  - Pneumonia [Unknown]
  - Diarrhoea [Unknown]
  - Dehydration [Unknown]
  - Blood potassium increased [Unknown]
  - Vomiting [Unknown]
  - Blood creatinine increased [Not Recovered/Not Resolved]
  - Thrombophlebitis superficial [Unknown]
  - Metastases to liver [Unknown]
  - Product dose omission [Unknown]

NARRATIVE: CASE EVENT DATE: 2018
